FAERS Safety Report 8672040 (Version 2)
Quarter: 2013Q2

REPORT INFORMATION
  Report Type: Report from Study
  Country: FR (occurrence: FR)
  Receive Date: 20120719
  Receipt Date: 20130607
  Transmission Date: 20140414
  Serious: Yes (Death, Hospitalization)
  Sender: FDA-Public Use
  Company Number: FR-BIOGENIDEC-2012BI025019

PATIENT
  Age: 42 Year
  Sex: Male

DRUGS (11)
  1. TYSABRI [Suspect]
     Indication: MULTIPLE SCLEROSIS
     Route: 042
     Dates: start: 20070723, end: 20090316
  2. DEROXAT [Concomitant]
  3. NEURONTIN [Concomitant]
  4. DAFALGAN [Concomitant]
  5. ZYVOXID [Concomitant]
     Route: 042
  6. TAZOCILLINE [Concomitant]
     Route: 042
  7. VENTOLINE [Concomitant]
  8. ATROVENT [Concomitant]
  9. INEXIUM [Concomitant]
  10. OXYGEN [Concomitant]
  11. NORMAL SALINE [Concomitant]
     Route: 042

REACTIONS (1)
  - Bronchopneumopathy [Fatal]
